FAERS Safety Report 10850403 (Version 1)
Quarter: 2015Q1

REPORT INFORMATION
  Report Type: Spontaneous
  Country: US (occurrence: US)
  Receive Date: 20150222
  Receipt Date: 20150222
  Transmission Date: 20150721
  Serious: No
  Sender: FDA-Public Use
  Company Number: US-ALLERGAN-1501236US

PATIENT
  Age: 72 Year
  Sex: Female

DRUGS (2)
  1. OZURDEX [Suspect]
     Active Substance: DEXAMETHASONE
     Dosage: 0.7 MG, SINGLE
     Route: 031
     Dates: start: 201406, end: 201406
  2. OZURDEX [Suspect]
     Active Substance: DEXAMETHASONE
     Indication: EYE HAEMORRHAGE
     Dosage: 0.7 MG, SINGLE
     Route: 031
     Dates: start: 201412

REACTIONS (7)
  - Off label use [Unknown]
  - Ageusia [Unknown]
  - Dyspnoea [Unknown]
  - Weight decreased [Unknown]
  - Vomiting [Unknown]
  - Feeling cold [Not Recovered/Not Resolved]
  - Nausea [Unknown]
